FAERS Safety Report 5720325-7 (Version None)
Quarter: 2008Q2

REPORT INFORMATION
  Report Type: 
  Country: None (occurrence: None)
  Receive Date: 20080428
  Receipt Date: 20080416
  Transmission Date: 20081010
  Serious: Yes (Other)
  Sender: FDA-Public Use
  Company Number: US-PFIZER INC-2008035304

PATIENT
  Sex: Male
  Weight: 90.7 kg

DRUGS (5)
  1. CHANTIX [Suspect]
     Indication: SMOKING CESSATION THERAPY
     Dates: start: 20080407, end: 20080415
  2. ACETYLSALICYLIC ACID SRT [Concomitant]
  3. CENTRUM SILVER [Concomitant]
  4. GLUCOSAMINE W/CHONDROITIN SULFATES [Concomitant]
  5. VITAMIN E [Concomitant]

REACTIONS (7)
  - APATHY [None]
  - BLOOD PRESSURE INCREASED [None]
  - EYE DISORDER [None]
  - FEELING ABNORMAL [None]
  - HEADACHE [None]
  - NIGHTMARE [None]
  - PARANOIA [None]
